FAERS Safety Report 4377376-7 (Version None)
Quarter: 2004Q2

REPORT INFORMATION
  Report Type: 
  Country: None (occurrence: None)
  Receive Date: 20040609
  Receipt Date: 20040504
  Transmission Date: 20050107
  Serious: No
  Sender: FDA-Public Use
  Company Number: 2004212234US

PATIENT
  Age: 59 Year
  Sex: Female

DRUGS (1)
  1. BEXTRA [Suspect]
     Indication: CHONDROPATHY
     Dosage: 10 MG, QD, UNK

REACTIONS (12)
  - ABDOMINAL DISTENSION [None]
  - ARTHRALGIA [None]
  - ASTHENIA [None]
  - CHILLS [None]
  - DIFFICULTY IN WALKING [None]
  - FATIGUE [None]
  - GINGIVAL BLEEDING [None]
  - INCREASED APPETITE [None]
  - LARYNGITIS [None]
  - MYALGIA [None]
  - RESPIRATORY TRACT INFECTION [None]
  - VISION BLURRED [None]
